FAERS Safety Report 6913484-1 (Version None)
Quarter: 2010Q3

REPORT INFORMATION
  Report Type: 
  Country: None (occurrence: None)
  Receive Date: 20100716
  Receipt Date: 20091012
  Transmission Date: 20110219
  Serious: Yes (Other)
  Sender: FDA-Public Use
  Company Number: 2009282591

PATIENT
  Age: 69 Year
  Sex: Female
  Weight: 92.5 kg

DRUGS (11)
  1. CELEBREX [Suspect]
     Indication: ARTHRALGIA
     Dosage: 200 MG, 1X/DAY
     Dates: start: 20091012
  2. CELEBREX [Suspect]
     Indication: BACK PAIN
     Dosage: 200 MG, 1X/DAY
     Dates: start: 20091012
  3. CELEBREX [Suspect]
     Indication: PAIN IN EXTREMITY
     Dosage: 200 MG, 1X/DAY
     Dates: start: 20091012
  4. ACETAMINOPHEN AND TRAMADOL HCL [Concomitant]
     Indication: ARTHRALGIA
     Dates: end: 20090101
  5. ACETAMINOPHEN AND TRAMADOL HCL [Concomitant]
     Indication: BACK PAIN
     Dates: end: 20090101
  6. ACETAMINOPHEN AND TRAMADOL HCL [Concomitant]
     Indication: PAIN IN EXTREMITY
     Dates: end: 20090101
  7. DIOVAN HCT [Concomitant]
  8. AMLODIPINE BESYLATE [Concomitant]
  9. LASIX [Concomitant]
  10. CARVEDILOL [Concomitant]
  11. SPIRONOLACTONE [Concomitant]

REACTIONS (5)
  - CHEST DISCOMFORT [None]
  - DRUG INTERACTION [None]
  - DYSPNOEA [None]
  - GASTROOESOPHAGEAL REFLUX DISEASE [None]
  - REGURGITATION [None]
